FAERS Safety Report 4942032-0 (Version None)
Quarter: 2006Q1

REPORT INFORMATION
  Report Type: 
  Country: None (occurrence: None)
  Receive Date: 20060313
  Receipt Date: 20050426
  Transmission Date: 20060701
  Serious: No
  Sender: FDA-Public Use
  Company Number: US-GLAXOSMITHKLINE-A0555741A

PATIENT
  Age: 36 Year
  Sex: Female

DRUGS (2)
  1. TARGET ORIGINAL 2MG [Suspect]
  2. TARGET NTS 14MG [Suspect]
     Dates: start: 20050425

REACTIONS (4)
  - DRUG ABUSER [None]
  - DRUG EXPOSURE DURING PREGNANCY [None]
  - DRUG WITHDRAWAL SYNDROME [None]
  - NICOTINE DEPENDENCE [None]
